FAERS Safety Report 15386451 (Version 1)
Quarter: 2018Q3

REPORT INFORMATION
  Report Type: Spontaneous
  Country: US (occurrence: US)
  Receive Date: 20180914
  Receipt Date: 20180914
  Transmission Date: 20181010
  Serious: No
  Sender: FDA-Public Use
  Company Number: US-PERRIGO-18US008032

PATIENT
  Sex: Male

DRUGS (3)
  1. HYDROCORTISONE                     /00028602/ [Suspect]
     Active Substance: HYDROCORTISONE
     Indication: SKIN IRRITATION
     Dosage: UNK, UNK
     Route: 061
     Dates: start: 201808
  2. NYSTOP [Suspect]
     Active Substance: NYSTATIN
     Indication: SKIN IRRITATION
     Dosage: UNK, UNK
     Route: 061
     Dates: start: 201808
  3. CLOTRIMAZOLE. [Suspect]
     Active Substance: CLOTRIMAZOLE
     Indication: SKIN IRRITATION
     Dosage: UNK, UNK
     Route: 061
     Dates: start: 201808

REACTIONS (1)
  - Drug ineffective [Unknown]

NARRATIVE: CASE EVENT DATE: 201808
